FAERS Safety Report 13757774 (Version 1)
Quarter: 2017Q3

REPORT INFORMATION
  Report Type: Spontaneous
  Country: US (occurrence: US)
  Receive Date: 20170717
  Receipt Date: 20170717
  Transmission Date: 20171127
  Serious: Yes (Other)
  Sender: FDA-Public Use
  Company Number: US-TEVA-788363ACC

PATIENT
  Sex: Female
  Weight: 89.44 kg

DRUGS (1)
  1. PARAGARD T 380A [Suspect]
     Active Substance: COPPER
     Indication: CONTRACEPTION
     Dates: start: 20160701, end: 20170712

REACTIONS (4)
  - Kidney infection [Recovered/Resolved]
  - Pelvic pain [Unknown]
  - Device dislocation [Recovered/Resolved]
  - Dyspareunia [Unknown]
